FAERS Safety Report 26138417 (Version 1)
Quarter: 2025Q4

REPORT INFORMATION
  Report Type: Report from Study
  Country: US (occurrence: US)
  Receive Date: 20251210
  Receipt Date: 20251210
  Transmission Date: 20260117
  Serious: Yes (Hospitalization)
  Sender: ETON PHARMACEUTICALS, INC
  Company Number: US-ETON-2025ETO000616

PATIENT

DRUGS (5)
  1. ALKINDI SPRINKLE [Suspect]
     Active Substance: HYDROCORTISONE
     Indication: Adrenoleukodystrophy
     Dosage: 2 MILLIGRAM, TID
     Route: 048
     Dates: start: 20250312
  2. ALKINDI SPRINKLE [Suspect]
     Active Substance: HYDROCORTISONE
     Dosage: 0.5 MILLIGRAM, 2 MG IN THE MORNING, 1.5 MG IN THE AFTERNOON AND 1.5 MG IN THE EVENING
     Route: 048
     Dates: start: 20231027
  3. ALKINDI SPRINKLE [Suspect]
     Active Substance: HYDROCORTISONE
     Dosage: 1 MILLIGRAM, 2 MG IN THE MORNING, 1.5 MG IN THE AFTERNOON AND 1.5 MG IN THE EVENING
     Route: 048
     Dates: start: 20231027
  4. ALKINDI SPRINKLE [Suspect]
     Active Substance: HYDROCORTISONE
     Dosage: 2 MILLIGRAM. 2 MG IN THE MORNING, 1.5 MG IN THE AFTERNOON AND 1.5 MG IN THE EVENING
     Route: 048
     Dates: start: 20231027
  5. MELATONIN [Concomitant]
     Active Substance: MELATONIN
     Indication: Product used for unknown indication

REACTIONS (5)
  - Dehydration [Unknown]
  - Pyrexia [Unknown]
  - Pharyngitis streptococcal [Unknown]
  - Headache [Unknown]
  - Off label use [Unknown]

NARRATIVE: CASE EVENT DATE: 20240101
